FAERS Safety Report 19191092 (Version 1)
Quarter: 2021Q2

REPORT INFORMATION
  Report Type: Spontaneous
  Country: US (occurrence: US)
  Receive Date: 20210428
  Receipt Date: 20210428
  Transmission Date: 20210717
  Serious: No
  Sender: FDA-Public Use
  Company Number: US-MYLANLABS-2021M1023130

PATIENT
  Sex: Female
  Weight: 56 kg

DRUGS (2)
  1. XULANE [Suspect]
     Active Substance: ETHINYL ESTRADIOL\NORELGESTROMIN
     Indication: CONTRACEPTION
  2. XULANE [Suspect]
     Active Substance: ETHINYL ESTRADIOL\NORELGESTROMIN
     Indication: ACNE
     Dosage: 150/35 MCG, QD (ONCE WEEKLY)
     Route: 062

REACTIONS (3)
  - Wrong technique in product usage process [Unknown]
  - Product adhesion issue [Unknown]
  - Off label use [Unknown]
